FAERS Safety Report 13516039 (Version 1)
Quarter: 2017Q2

REPORT INFORMATION
  Report Type: Spontaneous
  Country: US (occurrence: US)
  Receive Date: 20170505
  Receipt Date: 20170505
  Transmission Date: 20170830
  Serious: Yes (Death)
  Sender: FDA-Public Use
  Company Number: US-JNJFOC-20170428743

PATIENT
  Sex: Male

DRUGS (1)
  1. LISTERINE WHITENING [Suspect]
     Active Substance: ALCOHOL\HYDROGEN PEROXIDE\POLOXAMER 407
     Indication: DENTAL CARE
     Route: 048

REACTIONS (1)
  - Death [Fatal]
